FAERS Safety Report 6839780-4 (Version None)
Quarter: 2010Q3

REPORT INFORMATION
  Report Type: 
  Country: None (occurrence: None)
  Receive Date: 20100714
  Receipt Date: 20100702
  Transmission Date: 20110219
  Serious: Yes (Hospitalization)
  Sender: FDA-Public Use
  Company Number: US-PFIZER INC-2010051845

PATIENT
  Sex: Male
  Weight: 72.1 kg

DRUGS (6)
  1. *PREDNISONE [Suspect]
     Indication: PROSTATE CANCER
     Dosage: 10 MG, SINGLE
     Route: 048
     Dates: start: 20100104, end: 20100104
  2. *PREDNISONE [Suspect]
     Dosage: 5 MG, 2X/DAY
     Route: 048
     Dates: start: 20100104
  3. BLINDED *NO SUBJECT DRUG [Suspect]
     Indication: PROSTATE CANCER
     Dosage: 37.5 MG, 1X/DAY
     Route: 048
     Dates: start: 20100104
  4. BLINDED *PLACEBO [Suspect]
     Indication: PROSTATE CANCER
     Dosage: 37.5 MG, 1X/DAY
     Route: 048
     Dates: start: 20100104
  5. SUNITINIB MALATE [Suspect]
     Indication: PROSTATE CANCER
     Dosage: 37.5 MG, 1X/DAY
     Route: 048
     Dates: start: 20100104
  6. PERCOCET [Concomitant]
     Indication: PAIN

REACTIONS (1)
  - MUSCULAR WEAKNESS [None]
